FAERS Safety Report 10022636 (Version 1)
Quarter: 2014Q1

REPORT INFORMATION
  Report Type: Other
  Country: CN (occurrence: CN)
  Receive Date: 20140319
  Receipt Date: 20140319
  Transmission Date: 20141002
  Serious: Yes (Other)
  Sender: FDA-Public Use
  Company Number: CN-BRISTOL-MYERS SQUIBB COMPANY-20541785

PATIENT
  Sex: 0

DRUGS (15)
  1. ERBITUX SOLN FOR INF [Suspect]
     Indication: COLON CANCER
     Dosage: MAINTENANCE DOSE: 250 MG/M2,L IN 1 WK
     Route: 042
  2. ERBITUX SOLN FOR INF [Suspect]
     Indication: ADENOCARCINOMA
     Dosage: MAINTENANCE DOSE: 250 MG/M2,L IN 1 WK
     Route: 042
  3. ERBITUX SOLN FOR INF [Suspect]
     Indication: RECTAL CANCER
     Dosage: MAINTENANCE DOSE: 250 MG/M2,L IN 1 WK
     Route: 042
  4. ERBITUX SOLN FOR INF [Suspect]
     Indication: OESOPHAGEAL CARCINOMA
     Dosage: MAINTENANCE DOSE: 250 MG/M2,L IN 1 WK
     Route: 042
  5. ERBITUX SOLN FOR INF [Suspect]
     Indication: TONGUE NEOPLASM MALIGNANT STAGE UNSPECIFIED
     Dosage: MAINTENANCE DOSE: 250 MG/M2,L IN 1 WK
     Route: 042
  6. PACLITAXEL [Suspect]
  7. IRINOTECAN [Suspect]
  8. FLUOROURACIL [Suspect]
  9. LEUCOVORIN [Suspect]
  10. OXALIPLATIN [Suspect]
  11. TEGAFUR [Suspect]
  12. EPIRUBICIN [Suspect]
  13. PEMETREXED DISODIUM [Suspect]
  14. CAPECITABINE [Suspect]
  15. DIPHENHYDRAMINE [Concomitant]
     Indication: PREMEDICATION

REACTIONS (31)
  - Deep vein thrombosis [Unknown]
  - Pyrexia [Unknown]
  - Chills [Unknown]
  - Chest discomfort [Unknown]
  - Eyelid oedema [Unknown]
  - Blepharospasm [Unknown]
  - Hyperhidrosis [Recovered/Resolved]
  - Abdominal pain [Recovered/Resolved]
  - Hypersensitivity [Unknown]
  - Rash [Unknown]
  - Dyspepsia [Unknown]
  - Myalgia [Unknown]
  - Arthralgia [Unknown]
  - Hypotension [Unknown]
  - Hypokalaemia [Unknown]
  - Rhinorrhoea [Unknown]
  - Flushing [Unknown]
  - Alopecia [Unknown]
  - Pruritus [Unknown]
  - Dry skin [Unknown]
  - Nail disorder [Unknown]
  - Conjunctivitis [Unknown]
  - Fatigue [Unknown]
  - Decreased appetite [Unknown]
  - Nausea [Unknown]
  - Vomiting [Unknown]
  - Diarrhoea [Unknown]
  - Headache [Unknown]
  - Alanine aminotransferase increased [Unknown]
  - Blood alkaline phosphatase increased [Unknown]
  - Aspartate aminotransferase increased [Unknown]
